FAERS Safety Report 4907457-8 (Version None)
Quarter: 2006Q1

REPORT INFORMATION
  Report Type: 
  Country: None (occurrence: None)
  Receive Date: 20060210
  Receipt Date: 20051001
  Transmission Date: 20060701
  Serious: Yes (Hospitalization)
  Sender: FDA-Public Use
  Company Number: US-MERCK-0510USA01856

PATIENT
  Age: 60 Year
  Sex: Female
  Weight: 77 kg

DRUGS (2)
  1. VIOXX [Suspect]
     Indication: MYALGIA
     Route: 048
     Dates: start: 20040101, end: 20040101
  2. VIOXX [Suspect]
     Indication: ENDODONTIC PROCEDURE
     Route: 048
     Dates: start: 20040101, end: 20040101

REACTIONS (10)
  - AMNESIA [None]
  - ANGINA PECTORIS [None]
  - CEREBROVASCULAR ACCIDENT [None]
  - DEPRESSION [None]
  - FACIAL PALSY [None]
  - HYPOAESTHESIA [None]
  - PRESCRIBED OVERDOSE [None]
  - RETINAL HAEMORRHAGE [None]
  - TRANSIENT ISCHAEMIC ATTACK [None]
  - VOMITING [None]
